FAERS Safety Report 12961820 (Version 3)
Quarter: 2016Q4

REPORT INFORMATION
  Report Type: Spontaneous
  Country: CA (occurrence: CA)
  Receive Date: 20161121
  Receipt Date: 20161221
  Transmission Date: 20170207
  Serious: Yes (Other)
  Sender: FDA-Public Use
  Company Number: CA-PFIZER INC-2016521372

PATIENT
  Age: 56 Year
  Sex: Female
  Weight: 116 kg

DRUGS (5)
  1. RITUXAN [Suspect]
     Active Substance: RITUXIMAB
     Indication: RHEUMATOID ARTHRITIS
     Dosage: UNK
  2. SIMPONI [Concomitant]
     Active Substance: GOLIMUMAB
     Dosage: 186 MG, EVERY 8 WEEKS
     Route: 042
     Dates: start: 201304, end: 201406
  3. METHOTREXATE SODIUM. [Suspect]
     Active Substance: METHOTREXATE SODIUM
     Dosage: 20 MG, WEEKLY
     Dates: start: 20130522, end: 201402
  4. METHOTREXATE SODIUM. [Suspect]
     Active Substance: METHOTREXATE SODIUM
     Indication: RHEUMATOID ARTHRITIS
     Dosage: 20 MG, WEEKLY
     Dates: start: 20130522, end: 20131028
  5. SULFASALAZINE. [Suspect]
     Active Substance: SULFASALAZINE
     Indication: RHEUMATOID ARTHRITIS
     Dosage: UNK
     Dates: start: 20140130, end: 20140220

REACTIONS (10)
  - Hepatosplenomegaly [Unknown]
  - Biliary cirrhosis [Unknown]
  - Drug intolerance [Unknown]
  - Pain in extremity [Unknown]
  - Neck pain [Unknown]
  - Joint swelling [Unknown]
  - Peripheral swelling [Unknown]
  - Arthralgia [Unknown]
  - Treatment failure [Unknown]
  - Liver function test increased [Unknown]

NARRATIVE: CASE EVENT DATE: 20140203
